FAERS Safety Report 8477500 (Version 2)
Quarter: 2012Q4

REPORT INFORMATION
  Report Type: 
  Country: US (occurrence: US)
  Receive Date: 20120327
  Receipt Date: 20120907
  Transmission Date: 20130627
  Serious: Yes (Other)
  Sender: FDA-Public Use
  Company Number: US-BAYER-2012-028769

PATIENT
  Age: 25 Year
  Sex: Female

DRUGS (6)
  1. OCELLA [Suspect]
     Dosage: UNK
     Dates: start: 201001, end: 20100907
  2. YAZ [Suspect]
     Dosage: UNK
     Dates: start: 201003
  3. YASMIN [Suspect]
     Dosage: UNK
     Dates: start: 201003
  4. HYDROCODONE W/APAP [Concomitant]
     Dosage: 7.5/325 mg
     Dates: start: 20100901
  5. HYDROCODONE W/APAP [Concomitant]
     Dosage: 7.5/500 mg
     Dates: start: 20100906
  6. PENICILLIN VK [Concomitant]
     Dosage: 500 mg, UNK
     Dates: start: 20100901

REACTIONS (5)
  - Deep vein thrombosis [None]
  - Pain [None]
  - Pain [None]
  - Fear [None]
  - Injury [None]
